FAERS Safety Report 12538448 (Version 1)
Quarter: 2016Q3

REPORT INFORMATION
  Report Type: Spontaneous
  Country: AT (occurrence: AT)
  Receive Date: 20160707
  Receipt Date: 20160707
  Transmission Date: 20161109
  Serious: Yes (Other)
  Sender: FDA-Public Use
  Company Number: AT-ASTRAZENECA-2016SE11307

PATIENT
  Age: 74 Year
  Sex: Male

DRUGS (9)
  1. MIRTEL [Suspect]
     Active Substance: MIRTAZAPINE
     Route: 048
  2. ACEMIN [Concomitant]
     Active Substance: LISINOPRIL
  3. SEROQUEL [Suspect]
     Active Substance: QUETIAPINE FUMARATE
     Route: 048
     Dates: end: 20151002
  4. CONVULEX [Suspect]
     Active Substance: VALPROIC ACID
     Dosage: 3000.0MG UNKNOWN
     Route: 048
     Dates: start: 20150909, end: 20150930
  5. CONVULEX [Suspect]
     Active Substance: VALPROIC ACID
     Dosage: 2000.0MG UNKNOWN
     Route: 048
     Dates: start: 20151003, end: 20151008
  6. NEUROMULTIVIT [Concomitant]
     Active Substance: CYANOCOBALAMIN\PYRIDOXINE\THIAMINE
     Route: 048
     Dates: end: 20151110
  7. SEROQUEL [Suspect]
     Active Substance: QUETIAPINE FUMARATE
     Route: 048
     Dates: start: 20151003
  8. CONVULEX [Suspect]
     Active Substance: VALPROIC ACID
     Dosage: 2100.0MG UNKNOWN
     Route: 048
     Dates: start: 20151001, end: 20151001
  9. CONVULEX [Suspect]
     Active Substance: VALPROIC ACID
     Dosage: 1800.0MG UNKNOWN
     Route: 048
     Dates: start: 20151002, end: 20151002

REACTIONS (2)
  - Off label use [Unknown]
  - Thrombocytopenia [Recovered/Resolved]

NARRATIVE: CASE EVENT DATE: 20150930
